FAERS Safety Report 8401899-4 (Version None)
Quarter: 2012Q2

REPORT INFORMATION
  Report Type: 
  Country: None (occurrence: None)
  Receive Date: 20120601
  Receipt Date: 20120523
  Transmission Date: 20120825
  Serious: Yes (Other)
  Sender: FDA-Public Use
  Company Number: US-FRI-1000030709

PATIENT
  Sex: Female

DRUGS (6)
  1. SEROQUEL [Concomitant]
     Dosage: 100 MG QHS
  2. VIIBRYD [Suspect]
     Dosage: 20 MG
  3. VIIBRYD [Suspect]
     Indication: BIPOLAR I DISORDER
     Dosage: 10 MG
  4. LITHIUM CARBONATE [Concomitant]
     Dosage: 1500 MG DAILY
  5. VIIBRYD [Suspect]
     Indication: DEPRESSION
  6. EFFEXOR XR [Concomitant]
     Dosage: 37.5 MG QAM

REACTIONS (2)
  - OFF LABEL USE [None]
  - HYPERSENSITIVITY [None]
